FAERS Safety Report 5883890-5 (Version None)
Quarter: 2008Q3

REPORT INFORMATION
  Report Type: 
  Country: None (occurrence: None)
  Receive Date: 20080915
  Receipt Date: 20080904
  Transmission Date: 20090109
  Serious: Yes (Death)
  Sender: FDA-Public Use
  Company Number: A0747559A

PATIENT
  Age: 86 Year
  Sex: Female
  Weight: 76.8 kg

DRUGS (2)
  1. AVANDIA [Suspect]
     Indication: TYPE 2 DIABETES MELLITUS
     Dosage: 4MG TWICE PER DAY
     Route: 065
     Dates: start: 20050801, end: 20060225
  2. METFORMIN HCL [Concomitant]

REACTIONS (2)
  - DEATH [None]
  - MYOCARDIAL INFARCTION [None]
